FAERS Safety Report 4486404-X (Version None)
Quarter: 2004Q4

REPORT INFORMATION
  Report Type: 
  Country: None (occurrence: None)
  Receive Date: 20041022
  Receipt Date: 20041012
  Transmission Date: 20050328
  Serious: Yes (Hospitalization)
  Sender: FDA-Public Use
  Company Number: HQWYE756514OCT04

PATIENT
  Age: 64 Year
  Sex: Male

DRUGS (7)
  1. RAPAMUNE [Suspect]
     Indication: PROPHYLAXIS AGAINST TRANSPLANT REJECTION
     Dosage: 5 MG 1X PER 1 DAY, ORAL
     Route: 048
     Dates: start: 20040905
  2. CELLCEPT [Concomitant]
  3. PREDNISONE [Concomitant]
  4. LANTUS [Concomitant]
  5. COZAAR [Concomitant]
  6. TOPROL-XL [Concomitant]
  7. NORVASC [Concomitant]

REACTIONS (2)
  - LYMPHOCELE [None]
  - RENAL FAILURE ACUTE [None]
